FAERS Safety Report 5332457-6 (Version None)
Quarter: 2007Q2

REPORT INFORMATION
  Report Type: 
  Country: None (occurrence: None)
  Receive Date: 20070523
  Receipt Date: 20070514
  Transmission Date: 20071010
  Serious: Yes (Other)
  Sender: FDA-Public Use
  Company Number: GR-ASTRAZENECA-2007AC00880

PATIENT
  Age: 35 Year
  Sex: Female

DRUGS (4)
  1. PROPOFOL [Suspect]
     Indication: SEDATION
     Dosage: 2%, 25-30 ML/HR
     Route: 042
  2. PROPOFOL [Suspect]
     Indication: METABOLIC ABNORMALITY MANAGEMENT
     Dosage: 2%, 25-30 ML/HR
     Route: 042
  3. VASOPRESSORS [Suspect]
     Indication: PROPHYLAXIS
  4. REMIFENTANIL [Concomitant]
     Indication: SEDATION

REACTIONS (7)
  - CARDIOMYOPATHY [None]
  - HYPERKALAEMIA [None]
  - HYPERLIPIDAEMIA [None]
  - METABOLIC ACIDOSIS [None]
  - MUSCLE INJURY [None]
  - PROPOFOL INFUSION SYNDROME [None]
  - RENAL FAILURE ACUTE [None]
